FAERS Safety Report 20974401 (Version 1)
Quarter: 2022Q2

REPORT INFORMATION
  Report Type: Spontaneous
  Country: US (occurrence: None)
  Receive Date: 20220616
  Receipt Date: 20220616
  Transmission Date: 20220721
  Serious: No
  Sender: FDA-Public Use
  Company Number: None

PATIENT
  Age: 22 Year
  Sex: Female

DRUGS (1)
  1. INFLIXIMAB [Suspect]
     Active Substance: INFLIXIMAB
     Indication: Crohn^s disease
     Dosage: 700 MG EVERY 6 WEEKS IV?
     Route: 042
     Dates: start: 20201001

REACTIONS (2)
  - Throat tightness [None]
  - Therapy cessation [None]

NARRATIVE: CASE EVENT DATE: 20220606
